FAERS Safety Report 7730678-6 (Version None)
Quarter: 2011Q3

REPORT INFORMATION
  Report Type: 
  Country: None (occurrence: None)
  Receive Date: 20110906
  Receipt Date: 20110308
  Transmission Date: 20111222
  Serious: Yes (Hospitalization)
  Sender: FDA-Public Use
  Company Number: US-GLAXOSMITHKLINE-A0918112A

PATIENT
  Age: 65 Year
  Sex: Female

DRUGS (1)
  1. AVANDIA [Suspect]
     Indication: DIABETES MELLITUS
     Dosage: 8MG PER DAY
     Route: 048
     Dates: start: 20030915, end: 20061109

REACTIONS (7)
  - PULMONARY EMBOLISM [None]
  - FALL [None]
  - PANCREATITIS [None]
  - CARDIOMEGALY [None]
  - DYSPNOEA [None]
  - MOVEMENT DISORDER [None]
  - TRANSFUSION [None]
